FAERS Safety Report 25378749 (Version 1)
Quarter: 2025Q2

REPORT INFORMATION
  Report Type: Other
  Country: CN (occurrence: CN)
  Receive Date: 20250530
  Receipt Date: 20250530
  Transmission Date: 20250717
  Serious: Yes (Hospitalization, Other)
  Sender: Kanchan Healthcare
  Company Number: CN-Kanchan Healthcare INC-2177799

PATIENT
  Age: 3 Year
  Sex: Female

DRUGS (11)
  1. DEXAMETHASONE [Suspect]
     Active Substance: DEXAMETHASONE
     Indication: B-cell type acute leukaemia
     Dates: start: 202207
  2. VINCRISTINE SULFATE [Suspect]
     Active Substance: VINCRISTINE SULFATE
     Dates: start: 202207
  3. MICAFUNGIN [Concomitant]
     Active Substance: MICAFUNGIN SODIUM
  4. VORICONAZOLE [Concomitant]
     Active Substance: VORICONAZOLE
  5. AMPHOTERICIN B [Concomitant]
     Active Substance: AMPHOTERICIN B
  6. LINEZOLID [Concomitant]
     Active Substance: LINEZOLID
  7. IMIPENEM AND CILASTATIN [Concomitant]
     Active Substance: CILASTATIN SODIUM\IMIPENEM
  8. Cefoperazone Sodium-Sulbactam Sodium [Concomitant]
  9. CYTARABINE [Suspect]
     Active Substance: CYTARABINE
  10. METHOTREXATE [Suspect]
     Active Substance: METHOTREXATE
  11. DAUNORUBICIN HYDROCHLORIDE [Suspect]
     Active Substance: DAUNORUBICIN HYDROCHLORIDE
     Dates: start: 202207

REACTIONS (1)
  - Neutropenia [Unknown]
